FAERS Safety Report 5256155-2 (Version None)
Quarter: 2007Q1

REPORT INFORMATION
  Report Type: 
  Country: None (occurrence: None)
  Receive Date: 20070302
  Receipt Date: 20070302
  Transmission Date: 20070707
  Serious: Yes (Other)
  Sender: FDA-Public Use
  Company Number: None

PATIENT
  Sex: Female
  Weight: 56.6996 kg

DRUGS (1)
  1. ENBREL [Suspect]
     Dosage: 50 MG -1ML- WEEKLY SQ
     Route: 058
     Dates: start: 20061110, end: 20070203

REACTIONS (5)
  - BONE NEOPLASM MALIGNANT [None]
  - HEPATIC NEOPLASM MALIGNANT [None]
  - LUNG NEOPLASM MALIGNANT [None]
  - NEOPLASM [None]
  - TEARFULNESS [None]
